FAERS Safety Report 7632503-0 (Version None)
Quarter: 2011Q3

REPORT INFORMATION
  Report Type: 
  Country: None (occurrence: None)
  Receive Date: 20110725
  Receipt Date: 20100922
  Transmission Date: 20111222
  Serious: No
  Sender: FDA-Public Use
  Company Number: US-BRISTOL-MYERS SQUIBB COMPANY-15299704

PATIENT
  Age: 63 Year
  Sex: Male

DRUGS (5)
  1. COUMADIN [Suspect]
     Dosage: 2.5MG THE OTHER 6 DAYS A WEEK
  2. MULTI-VITAMIN [Concomitant]
  3. ASPIRIN [Concomitant]
  4. FLOMAX [Concomitant]
  5. VERAPAMIL [Concomitant]
     Indication: HYPERTENSION

REACTIONS (3)
  - PROSTATIC SPECIFIC ANTIGEN INCREASED [None]
  - INFECTION [None]
  - MOUTH HAEMORRHAGE [None]
